FAERS Safety Report 4316329-1 (Version None)
Quarter: 2004Q1

REPORT INFORMATION
  Report Type: 
  Country: None (occurrence: None)
  Receive Date: 20040310
  Receipt Date: 20030422
  Transmission Date: 20041129
  Serious: Yes (Other)
  Sender: FDA-Public Use
  Company Number: HQWYE892423APR03

PATIENT
  Age: 80 Year
  Sex: Female
  Weight: 49.94 kg

DRUGS (1)
  1. PROTONIX [Suspect]
     Dosage: ORAL
     Route: 048
     Dates: start: 20021023, end: 20021118

REACTIONS (3)
  - ACTIVITIES OF DAILY LIVING IMPAIRED [None]
  - CONFUSIONAL STATE [None]
  - DECUBITUS ULCER [None]
